FAERS Safety Report 21484197 (Version 1)
Quarter: 2022Q4

REPORT INFORMATION
  Report Type: Spontaneous
  Country: FR (occurrence: FR)
  Receive Date: 20221020
  Receipt Date: 20221020
  Transmission Date: 20230113
  Serious: Yes (Hospitalization)
  Sender: FDA-Public Use
  Company Number: None

PATIENT
  Age: 77 Year
  Sex: Female
  Weight: 105 kg

DRUGS (14)
  1. ALLOPURINOL [Suspect]
     Active Substance: ALLOPURINOL
     Indication: Gouty arthritis
     Dates: start: 202201
  2. CEFTRIAXONE [Suspect]
     Active Substance: CEFTRIAXONE
     Indication: Bacteraemia
     Dates: start: 20220504, end: 20220514
  3. COLCHICINE [Suspect]
     Active Substance: COLCHICINE
     Indication: Arthritis
     Dates: start: 20220312, end: 20220409
  4. ELIQUIS [Suspect]
     Active Substance: APIXABAN
     Indication: Atrial fibrillation
     Dosage: STRENGTH: 5MG
     Dates: start: 20220415, end: 20220607
  5. CEFPODOXIME [Suspect]
     Active Substance: CEFPODOXIME
     Indication: Infection
     Dates: start: 20220414, end: 20220415
  6. ACETAMINOPHEN\OPIUM [Suspect]
     Active Substance: ACETAMINOPHEN\OPIUM
     Indication: Pain
     Dates: start: 20220302, end: 20220404
  7. PRISTINAMYCIN [Suspect]
     Active Substance: PRISTINAMYCIN
     Indication: Infection
     Dates: start: 20220415, end: 20220430
  8. GLICLAZIDE [Concomitant]
     Active Substance: GLICLAZIDE
  9. SITAGLIPTIN [Concomitant]
     Active Substance: SITAGLIPTIN
  10. METFORMIN PAMOATE [Concomitant]
     Active Substance: METFORMIN PAMOATE
  11. FUROSEMIDE [Concomitant]
     Active Substance: FUROSEMIDE
  12. LOVENOX [Concomitant]
     Active Substance: ENOXAPARIN SODIUM
  13. BILASTINE [Concomitant]
     Active Substance: BILASTINE
  14. POTASSIUM CHLORIDE [Concomitant]
     Active Substance: POTASSIUM CHLORIDE

REACTIONS (4)
  - Condition aggravated [Recovering/Resolving]
  - Dermatitis exfoliative generalised [Recovering/Resolving]
  - Eosinophilia [Recovering/Resolving]
  - Neutrophilia [Recovering/Resolving]

NARRATIVE: CASE EVENT DATE: 20220501
